FAERS Safety Report 9773427 (Version 1)
Quarter: 2013Q4

REPORT INFORMATION
  Report Type: Report from Study
  Country: BR (occurrence: BR)
  Receive Date: 20131219
  Receipt Date: 20131219
  Transmission Date: 20140711
  Serious: Yes (Death, Hospitalization, Other)
  Sender: FDA-Public Use
  Company Number: PHHY2013BR148657

PATIENT
  Sex: Female
  Weight: 55 kg

DRUGS (2)
  1. EXELON PATCH [Suspect]
     Indication: DEMENTIA ALZHEIMER^S TYPE
     Dosage: 4.6 MG, DAILY
     Route: 062
     Dates: end: 20130913
  2. DIAZEPAM [Concomitant]
     Indication: DEPRESSION
     Dosage: UNK UKN, UNK
     Dates: end: 20130805

REACTIONS (3)
  - Cardiac arrest [Fatal]
  - Diabetes mellitus [Not Recovered/Not Resolved]
  - Hypertension [Not Recovered/Not Resolved]
